FAERS Safety Report 20524646 (Version 1)
Quarter: 2022Q1

REPORT INFORMATION
  Report Type: Spontaneous
  Country: FR (occurrence: FR)
  Receive Date: 20220228
  Receipt Date: 20220228
  Transmission Date: 20220423
  Serious: Yes (Hospitalization, Disabling, Congenital Anomaly, Other)
  Sender: FDA-Public Use
  Company Number: FR-ABBVIE-22K-056-4292897-00

PATIENT
  Sex: Female
  Weight: 3.18 kg

DRUGS (1)
  1. VALPROATE SODIUM [Suspect]
     Active Substance: VALPROATE SODIUM
     Indication: Maternal exposure timing unspecified
     Route: 064

REACTIONS (8)
  - Hypotonia [Unknown]
  - Foot deformity [Unknown]
  - Foot deformity [Unknown]
  - Gait disturbance [Unknown]
  - Balance disorder [Unknown]
  - Myopia [Unknown]
  - Shoulder dystocia [Unknown]
  - Foetal exposure during pregnancy [Unknown]

NARRATIVE: CASE EVENT DATE: 20021101
